FAERS Safety Report 17100555 (Version 2)
Quarter: 2019Q4

REPORT INFORMATION
  Report Type: Spontaneous
  Country: DE (occurrence: DE)
  Receive Date: 20191202
  Receipt Date: 20191205
  Transmission Date: 20200122
  Serious: Yes (Hospitalization)
  Sender: FDA-Public Use
  Company Number: DE-MYLANLABS-2019M1115754

PATIENT
  Age: 83 Year
  Sex: Male

DRUGS (11)
  1. PANTOPRAZOL                        /01263201/ [Concomitant]
     Active Substance: PANTOPRAZOLE
     Dosage: 20 MG, 1-0-0-0
  2. TROSPIUM [Concomitant]
     Active Substance: TROSPIUM
     Dosage: 30 MG, 0.5-0.5-0.5-0
  3. TORASEMID [Concomitant]
     Active Substance: TORSEMIDE
     Dosage: 10 MG, 1-1-0-0
  4. PREDNISOLON                        /00016201/ [Concomitant]
     Active Substance: PREDNISOLONE
     Dosage: NK MG, 0-0-0-1; SEIT 23.10.2017
  5. THEOPHYLLIN [Concomitant]
     Active Substance: THEOPHYLLINE ANHYDROUS
     Dosage: 350 MG, 1-0-1-0
  6. METOPROLOL. [Suspect]
     Active Substance: METOPROLOL
     Indication: PRODUCT USED FOR UNKNOWN INDICATION
     Dosage: 23.75 MILLIGRAM, BID (23.75 MG, 1-0-1-0)
  7. ATORVASTATIN [Concomitant]
     Active Substance: ATORVASTATIN
     Dosage: 40 MG, 0-0-1-0
  8. FORMATRIS [Concomitant]
     Active Substance: FORMOTEROL FUMARATE
     Dosage: NK UG, 1-0-1-0
  9. ASPIRIN. [Concomitant]
     Active Substance: ASPIRIN
     Dosage: 100 MG, 0-1-0-0
  10. SALBUTAMOL [Concomitant]
     Active Substance: ALBUTEROL
     Dosage: NK MG, SEIT 23.10.2017
  11. SPIRIVA [Concomitant]
     Active Substance: TIOTROPIUM BROMIDE MONOHYDRATE
     Dosage: NK UG, 1-0-0-0

REACTIONS (2)
  - Product prescribing error [Unknown]
  - Bronchospasm [Unknown]

NARRATIVE: CASE EVENT DATE: 20171022
